FAERS Safety Report 8589861-2 (Version None)
Quarter: 2012Q3

REPORT INFORMATION
  Report Type: 
  Country: None (occurrence: None)
  Receive Date: 20120813
  Receipt Date: 20120807
  Transmission Date: 20120928
  Serious: Yes (Hospitalization, Other)
  Sender: FDA-Public Use
  Company Number: CR-ROCHE-1099185

PATIENT
  Sex: Female

DRUGS (6)
  1. ATORVASTATIN [Concomitant]
     Indication: DYSLIPIDAEMIA
  2. IRBESARTAN [Concomitant]
     Indication: HYPERTENSION
  3. LEVOTIROX [Concomitant]
     Indication: THYROID DISORDER
  4. IMIPRAMINE HCL [Concomitant]
     Indication: FIBROMYALGIA
  5. AMLODIPINE [Concomitant]
     Indication: HYPERTENSION
  6. BONIVA [Suspect]
     Indication: OSTEOPENIA
     Route: 048
     Dates: start: 20070508

REACTIONS (3)
  - ECCHYMOSIS [None]
  - UPPER LIMB FRACTURE [None]
  - CELLULITIS [None]
